FAERS Safety Report 15911371 (Version 2)
Quarter: 2019Q1

REPORT INFORMATION
  Report Type: Spontaneous
  Country: JP (occurrence: JP)
  Receive Date: 20190204
  Receipt Date: 20190301
  Transmission Date: 20190417
  Serious: No
  Sender: FDA-Public Use
  Company Number: JP-ELI_LILLY_AND_COMPANY-JP201901013702

PATIENT
  Age: 55 Year
  Sex: Male

DRUGS (1)
  1. ZALUTIA [Suspect]
     Active Substance: TADALAFIL
     Indication: BENIGN PROSTATIC HYPERPLASIA
     Dosage: 5 MG, DAILY
     Route: 048
     Dates: start: 201704

REACTIONS (2)
  - Glare [Recovered/Resolved]
  - Lacrimation increased [Unknown]

NARRATIVE: CASE EVENT DATE: 201901
